FAERS Safety Report 15027532 (Version 7)
Quarter: 2019Q1

REPORT INFORMATION
  Report Type: Spontaneous
  Country: ES (occurrence: ES)
  Receive Date: 20180619
  Receipt Date: 20190207
  Transmission Date: 20190417
  Serious: Yes (Other)
  Sender: FDA-Public Use
  Company Number: ES-AUROBINDO-AUR-APL-2017-45946

PATIENT

DRUGS (7)
  1. ROTIGOTINE [Suspect]
     Active Substance: ROTIGOTINE
     Indication: PARKINSON^S DISEASE
     Dosage: 6 MILLIGRAM, ONCE A DAY
     Route: 065
     Dates: start: 2017
  2. ROTIGOTINE [Suspect]
     Active Substance: ROTIGOTINE
     Dosage: 8 MG + 2 MG; 2 PATCHES/DAY AND SPLITTING THE PATCH
     Route: 065
     Dates: start: 20190110
  3. ROTIGOTINE [Suspect]
     Active Substance: ROTIGOTINE
     Dosage: 8 MG, ONCE DAILY (QD)
     Route: 065
     Dates: start: 201802, end: 2018
  4. SIMVASTATIN. [Suspect]
     Active Substance: SIMVASTATIN
     Indication: BLOOD CHOLESTEROL
     Dosage: 10 MILLIGRAM
     Route: 065
  5. ROTIGOTINE [Suspect]
     Active Substance: ROTIGOTINE
     Dosage: 8 MG + 4 MG, 2 PATCHES/DAY
     Route: 065
     Dates: start: 2018, end: 20190109
  6. SEGURIL [Concomitant]
     Active Substance: FUROSEMIDE
     Indication: PRODUCT USED FOR UNKNOWN INDICATION
     Dosage: UNK
     Route: 065
  7. ROTIGOTINE [Suspect]
     Active Substance: ROTIGOTINE
     Dosage: 16 MILLIGRAM, ONCE A DAY
     Route: 065
     Dates: start: 201811, end: 20181128

REACTIONS (18)
  - Swelling face [Recovering/Resolving]
  - Peripheral swelling [Unknown]
  - Gait disturbance [Not Recovered/Not Resolved]
  - Off label use [Unknown]
  - Muscular weakness [Not Recovered/Not Resolved]
  - Hallucination, visual [Not Recovered/Not Resolved]
  - Fall [Recovering/Resolving]
  - Pruritus generalised [Unknown]
  - Overdose [Unknown]
  - Application site erythema [Not Recovered/Not Resolved]
  - Back pain [Not Recovered/Not Resolved]
  - Joint injury [Recovering/Resolving]
  - Balance disorder [Not Recovered/Not Resolved]
  - Dizziness [Not Recovered/Not Resolved]
  - Nasopharyngitis [Not Recovered/Not Resolved]
  - Asthenia [Not Recovered/Not Resolved]
  - Constipation [Recovering/Resolving]
  - Intentional product misuse [Unknown]

NARRATIVE: CASE EVENT DATE: 2017
